FAERS Safety Report 6682468-3 (Version None)
Quarter: 2010Q2

REPORT INFORMATION
  Report Type: 
  Country: None (occurrence: None)
  Receive Date: 20100415
  Receipt Date: 20100406
  Transmission Date: 20101027
  Serious: Yes (Hospitalization, Other)
  Sender: FDA-Public Use
  Company Number: PHHY2010MX21965

PATIENT
  Age: 70 Year
  Sex: Female

DRUGS (3)
  1. ACLASTA [Suspect]
     Indication: OSTEOPOROSIS
     Dosage: 1 INJECTION 5MG/100ML PER YEAR
     Route: 042
     Dates: start: 20090401
  2. LERTUS [Concomitant]
     Dosage: UNK
     Dates: start: 20090101
  3. TRADOL [Concomitant]
     Dosage: UNK

REACTIONS (4)
  - ARTHROPATHY [None]
  - PAIN [None]
  - SPINAL OPERATION [None]
  - UTERINE OPERATION [None]
